FAERS Safety Report 13550001 (Version 4)
Quarter: 2017Q3

REPORT INFORMATION
  Report Type: Spontaneous
  Country: JP (occurrence: JP)
  Receive Date: 20170516
  Receipt Date: 20170712
  Transmission Date: 20171127
  Serious: Yes (Hospitalization, Other)
  Sender: FDA-Public Use
  Company Number: JP-GLAXOSMITHKLINE-JP2017JPN069134

PATIENT
  Age: 39 Year
  Sex: Female
  Weight: 52 kg

DRUGS (7)
  1. NEXIUM CAPSULE [Concomitant]
     Dosage: UNK
  2. CARBOCISTEINE TABLETS [Concomitant]
     Active Substance: CARBOCYSTEINE
     Dosage: UNK
  3. DAIPHEN COMBINATION TABLETS [Concomitant]
     Dosage: UNK
  4. BESOFTEN LOTION (JAPAN) [Concomitant]
     Dosage: UNK
  5. SERETIDE [Suspect]
     Active Substance: FLUTICASONE PROPIONATE\SALMETEROL XINAFOATE
     Indication: PROPHYLAXIS
     Dosage: 500 ?G, BID
     Route: 055
     Dates: start: 20150710
  6. VICCLOX [Concomitant]
     Active Substance: ACYCLOVIR SODIUM
     Dosage: UNK
  7. BROTIZOLAM OD [Concomitant]
     Dosage: UNK

REACTIONS (3)
  - Influenza [Recovered/Resolved]
  - Product use in unapproved indication [Unknown]
  - Pneumonia [Recovered/Resolved]

NARRATIVE: CASE EVENT DATE: 20150710
